FAERS Safety Report 5810931-3 (Version None)
Quarter: 2008Q3

REPORT INFORMATION
  Report Type: 
  Country: None (occurrence: None)
  Receive Date: 20080716
  Receipt Date: 20080707
  Transmission Date: 20090109
  Serious: Yes (Other)
  Sender: FDA-Public Use
  Company Number: PHEH2008US05726

PATIENT
  Sex: Male

DRUGS (2)
  1. AREDIA [Suspect]
     Indication: METASTASES TO BONE
     Dosage: UNK
     Dates: start: 20080201
  2. ZOMETA [Suspect]
     Indication: METASTASES TO BONE
     Dosage: 4 MG, EVERY 4-6 WEEKS
     Route: 042
     Dates: start: 20070101, end: 20080101

REACTIONS (5)
  - BONE DISORDER [None]
  - EXOSTOSIS [None]
  - JAW LESION EXCISION [None]
  - OSTEONECROSIS [None]
  - PAIN IN JAW [None]
